FAERS Safety Report 6732029-2 (Version None)
Quarter: 2010Q2

REPORT INFORMATION
  Report Type: 
  Country: None (occurrence: None)
  Receive Date: 20100519
  Receipt Date: 20100505
  Transmission Date: 20101027
  Serious: Yes (Death, Hospitalization, Other)
  Sender: FDA-Public Use
  Company Number: HU-AMGEN-UK384260

PATIENT
  Sex: Female
  Weight: 54 kg

DRUGS (14)
  1. NPLATE [Suspect]
     Indication: IDIOPATHIC THROMBOCYTOPENIC PURPURA
     Route: 058
     Dates: start: 20090826
  2. PANTOPRAZOLE [Concomitant]
  3. BISOPROLOL FUMARATE [Concomitant]
  4. DURAGESIC-100 [Concomitant]
  5. METOPROLOL TARTRATE [Concomitant]
     Route: 048
  6. METHYLPREDNISOLONE 4MG TAB [Concomitant]
     Route: 048
  7. SIMVASTATIN [Concomitant]
     Route: 048
  8. FUROSEMIDE [Concomitant]
     Route: 048
  9. SPIRONOLACTONE [Concomitant]
     Route: 048
  10. VERAPAMIL [Concomitant]
  11. NITROGLYCERIN [Concomitant]
     Route: 062
  12. CONTROLOC [Concomitant]
  13. VITAMIN C [Concomitant]
  14. UNSPECIFIED BETA BLOCKER [Concomitant]

REACTIONS (24)
  - ALOPECIA [None]
  - ASTHENIA [None]
  - BODY TEMPERATURE INCREASED [None]
  - CARDIAC FAILURE [None]
  - CARDIO-RESPIRATORY ARREST [None]
  - COAGULATION FACTOR VIII LEVEL INCREASED [None]
  - CRYOFIBRINOGENAEMIA [None]
  - DECREASED APPETITE [None]
  - DRY GANGRENE [None]
  - EMBOLISM [None]
  - FATIGUE [None]
  - GENERAL PHYSICAL HEALTH DETERIORATION [None]
  - NAUSEA [None]
  - PAIN IN EXTREMITY [None]
  - PLATELET COUNT ABNORMAL [None]
  - PURPURA [None]
  - SEPSIS [None]
  - SEPTIC SHOCK [None]
  - SKIN DISCOLOURATION [None]
  - SKIN HAEMORRHAGE [None]
  - THROMBOCYTOPENIA [None]
  - VASCULITIS [None]
  - VON WILLEBRAND'S FACTOR ACTIVITY INCREASED [None]
  - VON WILLEBRAND'S FACTOR ANTIGEN INCREASED [None]
